FAERS Safety Report 7168180-5 (Version None)
Quarter: 2010Q4

REPORT INFORMATION
  Report Type: 
  Country: None (occurrence: None)
  Receive Date: 20101216
  Receipt Date: 20101208
  Transmission Date: 20110411
  Serious: Yes (Hospitalization, Other)
  Sender: FDA-Public Use
  Company Number: US-PFIZER INC-2010167277

PATIENT
  Sex: Female
  Weight: 68 kg

DRUGS (20)
  1. LYRICA [Suspect]
     Indication: DIABETES MELLITUS
     Dosage: 25 MG, 1X/DAY
     Route: 048
     Dates: start: 20050101, end: 20101115
  2. LYRICA [Suspect]
     Indication: FIBROMYALGIA
  3. FENTANYL [Suspect]
     Indication: BACK PAIN
     Dosage: 50 MICRO UNITS
  4. FENTANYL [Suspect]
     Indication: PAIN IN EXTREMITY
  5. ALTACE [Concomitant]
     Indication: BLOOD PRESSURE ABNORMAL
     Dosage: 5 MG, 2X/DAY
     Route: 048
  6. INDERAL [Concomitant]
     Indication: MITRAL VALVE PROLAPSE
     Dosage: 10 MG, 3X/DAY
     Route: 048
  7. ARMOUR THYROID [Concomitant]
     Indication: THYROID DISORDER
     Dosage: 30 MG ON EVEN DAYS AND 45 MG ON ODD DAYS
     Route: 048
  8. VITAMIN B-12 [Concomitant]
     Indication: ANAEMIA
     Dosage: 1.5 ML, MONTHLY
  9. TRAZODONE [Concomitant]
     Indication: DEPRESSION
     Dosage: 200 MG, 1X/DAY
     Route: 048
  10. TRAZODONE [Concomitant]
     Indication: ANXIETY
  11. TRAZODONE [Concomitant]
     Indication: POST-TRAUMATIC STRESS DISORDER
  12. KLONOPIN [Concomitant]
     Indication: DEPRESSION
     Dosage: 1.5 MG, 3X/DAY
     Route: 048
  13. KLONOPIN [Concomitant]
     Indication: ANXIETY
  14. KLONOPIN [Concomitant]
     Indication: POST-TRAUMATIC STRESS DISORDER
  15. REMERON [Concomitant]
     Indication: DEPRESSION
     Dosage: 45 MG, 1X/DAY
     Route: 048
  16. REMERON [Concomitant]
     Indication: ANXIETY
  17. REMERON [Concomitant]
     Indication: POST-TRAUMATIC STRESS DISORDER
  18. SEROQUEL [Concomitant]
     Indication: DEPRESSION
     Dosage: 300 MG, 1X/DAY
     Route: 048
  19. SEROQUEL [Concomitant]
     Indication: ANXIETY
  20. SEROQUEL [Concomitant]
     Indication: POST-TRAUMATIC STRESS DISORDER

REACTIONS (9)
  - ABDOMINAL PAIN [None]
  - BLOOD POTASSIUM DECREASED [None]
  - DEHYDRATION [None]
  - DIARRHOEA [None]
  - MALAISE [None]
  - NAUSEA [None]
  - VITAMIN D DECREASED [None]
  - VOMITING [None]
  - WEIGHT DECREASED [None]
